FAERS Safety Report 10077309 (Version 2)
Quarter: 2014Q2

REPORT INFORMATION
  Report Type: Spontaneous
  Country: DE (occurrence: None)
  Receive Date: 20140411
  Receipt Date: 20140417
  Transmission Date: 20141212
  Serious: Yes (Hospitalization, Other)
  Sender: FDA-Public Use
  Company Number: 2014-19313

PATIENT
  Age: 79 Year
  Sex: Male

DRUGS (1)
  1. EYLEA [Suspect]
     Indication: AGE-RELATED MACULAR DEGENERATION
     Dosage: 2 MG MILLIGRAM(S), 1 IN 4 WEEKS, INTRAOCULAR
     Route: 031
     Dates: start: 20121123, end: 20130210

REACTIONS (2)
  - Eye haemorrhage [None]
  - Retinal haemorrhage [None]
